FAERS Safety Report 24169760 (Version 2)
Quarter: 2024Q3

REPORT INFORMATION
  Report Type: Spontaneous
  Country: US (occurrence: US)
  Receive Date: 20240803
  Receipt Date: 20240821
  Transmission Date: 20241016
  Serious: No
  Sender: ABBVIE
  Company Number: US-ABBVIE-5856302

PATIENT

DRUGS (2)
  1. LATISSE [Suspect]
     Active Substance: BIMATOPROST
     Indication: Product used for unknown indication
     Route: 047
     Dates: start: 2023
  2. LATISSE [Suspect]
     Active Substance: BIMATOPROST
     Route: 047

REACTIONS (1)
  - Madarosis [Unknown]

NARRATIVE: CASE EVENT DATE: 20240601
